FAERS Safety Report 19910670 (Version 1)
Quarter: 2021Q4

REPORT INFORMATION
  Report Type: Spontaneous
  Country: US (occurrence: US)
  Receive Date: 20211004
  Receipt Date: 20211004
  Transmission Date: 20220303
  Serious: No
  Sender: FDA-Public Use
  Company Number: US-JNJFOC-20210943634

PATIENT
  Age: 76 Year
  Sex: Male
  Weight: 61.74 kg

DRUGS (1)
  1. DARZALEX [Suspect]
     Active Substance: DARATUMUMAB
     Indication: Plasma cell myeloma
     Dosage: RECENT DOSE :10-SEP-2021
     Route: 042

REACTIONS (1)
  - Coombs test positive [Unknown]
